FAERS Safety Report 8194069 (Version 2)
Quarter: 2012Q4

REPORT INFORMATION
  Report Type: 
  Country: US (occurrence: US)
  Receive Date: 20111021
  Receipt Date: 20121101
  Transmission Date: 20130627
  Serious: Yes (Other)
  Sender: FDA-Public Use
  Company Number: US-US-EMD SERONO, INC.-7089439

PATIENT
  Age: 42 Year
  Sex: Male

DRUGS (4)
  1. REBIF [Suspect]
     Indication: MULTIPLE SCLEROSIS
     Route: 058
     Dates: start: 20110802, end: 201110
  2. IBUPROFEN [Concomitant]
     Indication: PREMEDICATION
  3. NEURONTIN [Concomitant]
     Indication: NEUROPATHY PERIPHERAL
  4. CARBAMAZEPINE [Concomitant]
     Indication: NEUROPATHY PERIPHERAL

REACTIONS (4)
  - Loss of consciousness [Unknown]
  - Nausea [Unknown]
  - Hyperhidrosis [Unknown]
  - Tremor [Unknown]
